FAERS Safety Report 7058888-4 (Version None)
Quarter: 2010Q4

REPORT INFORMATION
  Report Type: 
  Country: None (occurrence: None)
  Receive Date: 20101022
  Receipt Date: 20101007
  Transmission Date: 20110411
  Serious: Yes (Other)
  Sender: FDA-Public Use
  Company Number: US-AMGEN AB-QUU437354

PATIENT

DRUGS (12)
  1. NPLATE [Suspect]
     Indication: IDIOPATHIC THROMBOCYTOPENIC PURPURA
     Dosage: 285 A?G, QWK
     Route: 058
     Dates: start: 20100812
  2. DEXAMETHASONE [Concomitant]
     Dosage: 1 MG, QOD
     Dates: start: 20100626, end: 20100909
  3. TRIMETHOPRIM + SULFAMETHOXAZOLE [Concomitant]
     Dosage: UNK UNK, 3 TIMES/WK
  4. FUROSEMIDE [Concomitant]
     Dosage: 20 MG, QD
  5. PLATELETS [Concomitant]
     Dosage: UNK UNK, PRN
  6. ATORVASTATIN CALCIUM [Concomitant]
     Dosage: 10 MG, UNK
  7. LISINOPRIL [Concomitant]
     Dosage: 10 MG, UNK
  8. METOPROLOL [Concomitant]
     Dosage: 100 MG, UNK
  9. METRONIDAZOLE [Concomitant]
  10. DOCUSATE SODIUM [Concomitant]
     Dosage: UNK UNK, PRN
  11. FUROSEMIDE [Concomitant]
  12. DOXEPIN HCL [Concomitant]

REACTIONS (7)
  - DEEP VEIN THROMBOSIS [None]
  - ECCHYMOSIS [None]
  - FATIGUE [None]
  - LEUKOCYTOSIS [None]
  - LYMPHOCYTOSIS [None]
  - VASCULAR ANOMALY [None]
  - WEIGHT INCREASED [None]
